FAERS Safety Report 20677022 (Version 1)
Quarter: 2022Q2

REPORT INFORMATION
  Report Type: Spontaneous
  Country: US (occurrence: None)
  Receive Date: 20220406
  Receipt Date: 20220406
  Transmission Date: 20220721
  Serious: No
  Sender: FDA-Public Use
  Company Number: US-EyePoint Pharmaceuticals, Inc.-US-EYP-21-00143

PATIENT
  Sex: Female

DRUGS (5)
  1. DEXYCU [Suspect]
     Active Substance: DEXAMETHASONE
     Indication: Post procedural inflammation
     Route: 031
     Dates: start: 20210810, end: 20210810
  2. CLONAZEPAM [Concomitant]
     Active Substance: CLONAZEPAM
     Indication: Petit mal epilepsy
  3. FLUOXETINE [Concomitant]
     Active Substance: FLUOXETINE HYDROCHLORIDE
     Indication: Anxiety
  4. PREMARIN [Concomitant]
     Active Substance: ESTROGENS, CONJUGATED
     Indication: Oestrogen replacement therapy
  5. XIIDRA [Concomitant]
     Active Substance: LIFITEGRAST
     Indication: Meibomian gland dysfunction

REACTIONS (1)
  - Visual impairment [Unknown]
